FAERS Safety Report 9217219 (Version 2)
Quarter: 2013Q2

REPORT INFORMATION
  Report Type: Report from Study
  Country: CA (occurrence: CA)
  Receive Date: 20130408
  Receipt Date: 20130410
  Transmission Date: 20140414
  Serious: Yes (Death)
  Sender: FDA-Public Use
  Company Number: CA-ROCHE-1200042

PATIENT
  Age: 67 Year
  Sex: Female
  Weight: 103 kg

DRUGS (6)
  1. ACTEMRA [Suspect]
     Indication: TEMPORAL ARTERITIS
     Route: 042
     Dates: start: 20130207, end: 20130306
  2. ACTEMRA [Suspect]
     Indication: OFF LABEL USE
  3. METHOTREXATE [Concomitant]
  4. CELEBREX [Concomitant]
  5. PREDNISONE [Concomitant]
  6. VITAMIN E [Concomitant]

REACTIONS (3)
  - Cardiac arrest [Fatal]
  - Nausea [Recovered/Resolved]
  - Pruritus [Recovered/Resolved]
